FAERS Safety Report 13445560 (Version 1)
Quarter: 2017Q2

REPORT INFORMATION
  Report Type: Spontaneous
  Country: US (occurrence: US)
  Receive Date: 20170415
  Receipt Date: 20170415
  Transmission Date: 20170830
  Serious: No
  Sender: FDA-Public Use
  Company Number: US-BION-005855

PATIENT
  Sex: Female

DRUGS (9)
  1. ALEVE [Suspect]
     Active Substance: NAPROXEN SODIUM
     Indication: HIP ARTHROPLASTY
  2. BAYER LOW DOSE [Suspect]
     Active Substance: ASPIRIN
     Indication: HIP ARTHROPLASTY
     Route: 048
  3. PROBIOTIC [Concomitant]
     Active Substance: PROBIOTICS NOS
  4. FERRO-FOLSAN [Concomitant]
  5. COLECALCIFEROL [Concomitant]
     Active Substance: CHOLECALCIFEROL
  6. HERBAL DIURETIC [Concomitant]
  7. FISH OIL [Concomitant]
     Active Substance: FISH OIL
  8. OMEGA [Concomitant]
     Active Substance: CONVALLARIA MAJALIS\CRATAEGUS LAEVIGATA LEAF\PROXYPHYLLINE
  9. LEKOVIT CA [Concomitant]
     Active Substance: CALCIUM CARBONATE\CHOLECALCIFEROL

REACTIONS (1)
  - Product use issue [Not Recovered/Not Resolved]
